FAERS Safety Report 5743583-1 (Version None)
Quarter: 2008Q2

REPORT INFORMATION
  Report Type: 
  Country: None (occurrence: None)
  Receive Date: 20080519
  Receipt Date: 20080519
  Transmission Date: 20081010
  Serious: Yes (Life-Threatening, Other)
  Sender: FDA-Public Use
  Company Number: None

PATIENT
  Age: 33 Year
  Sex: Female
  Weight: 61.2356 kg

DRUGS (4)
  1. LAMOTRIGINE [Suspect]
     Indication: ILL-DEFINED DISORDER
     Dosage: PO
     Route: 048
  2. TRILEPTAL UNLABELED TARGET / OTHER UNKNOWN [Suspect]
     Indication: BIPOLAR DISORDER
     Dosage: PO
     Route: 048
  3. TRILEPTAL UNLABELED TARGET / OTHER UNKNOWN [Suspect]
     Indication: FAMILIAL RISK FACTOR
     Dosage: PO
     Route: 048
  4. LIDEX [Concomitant]

REACTIONS (8)
  - ANAPHYLACTIC REACTION [None]
  - CYANOSIS [None]
  - DRUG ERUPTION [None]
  - NEUTROPENIA [None]
  - SKIN DISORDER [None]
  - STEVENS-JOHNSON SYNDROME [None]
  - TOXIC EPIDERMAL NECROLYSIS [None]
  - URTICARIA [None]
